FAERS Safety Report 10161081 (Version 1)
Quarter: 2014Q2

REPORT INFORMATION
  Report Type: Spontaneous
  Country: US (occurrence: US)
  Receive Date: 20140508
  Receipt Date: 20140508
  Transmission Date: 20141212
  Serious: No
  Sender: FDA-Public Use
  Company Number: US-PFIZER INC-2014123199

PATIENT
  Age: 52 Year
  Sex: Female
  Weight: 55.33 kg

DRUGS (1)
  1. LYRICA [Suspect]
     Indication: NEURALGIA
     Dosage: 100 MG, 3X/DAY
     Dates: start: 2011, end: 20140417

REACTIONS (2)
  - Depression [Unknown]
  - Crying [Unknown]
